FAERS Safety Report 6731786-9 (Version None)
Quarter: 2010Q2

REPORT INFORMATION
  Report Type: 
  Country: None (occurrence: None)
  Receive Date: 20100519
  Receipt Date: 20100507
  Transmission Date: 20101027
  Serious: Yes (Other)
  Sender: FDA-Public Use
  Company Number: BE-PFIZER INC-2010058274

PATIENT
  Sex: Male

DRUGS (1)
  1. TOVIAZ [Suspect]
     Dosage: UNK
     Route: 048

REACTIONS (1)
  - CONFUSIONAL STATE [None]
